FAERS Safety Report 6188988-2 (Version None)
Quarter: 2009Q2

REPORT INFORMATION
  Report Type: 
  Country: None (occurrence: None)
  Receive Date: 20090513
  Receipt Date: 20090501
  Transmission Date: 20091009
  Serious: Yes (Hospitalization)
  Sender: FDA-Public Use
  Company Number: US-PFIZER INC-2009200094

PATIENT
  Sex: Male
  Weight: 78.912 kg

DRUGS (31)
  1. MARAVIROC [Suspect]
     Indication: HIV INFECTION
     Dosage: 300 MG, 2X/DAY
     Route: 048
     Dates: start: 20051027
  2. MARAVIROC [Suspect]
     Dosage: 300 MG, 2X/DAY
     Route: 048
     Dates: start: 20090328, end: 20090406
  3. MARAVIROC [Suspect]
     Dosage: 300 MG, 2X/DAY
     Route: 048
     Dates: start: 20090422
  4. RALTEGRAVIR [Concomitant]
     Indication: HIV INFECTION
     Dosage: 400 MG, 2X/DAY
     Route: 048
     Dates: start: 20090115, end: 20090328
  5. RALTEGRAVIR [Concomitant]
     Dosage: 400 MG, 2X/DAY
     Route: 050
     Dates: start: 20090403, end: 20090406
  6. HYDROCHLOROTHIAZIDE [Concomitant]
     Dosage: 25 MG, 1X/DAY
     Route: 048
     Dates: start: 20050624
  7. LISINOPRIL [Concomitant]
     Dosage: 20 MG, 1X/DAY
     Route: 048
     Dates: start: 20050609
  8. NORVASC [Concomitant]
     Dosage: 10 MG, 1X/DAY
     Route: 048
     Dates: start: 20051028
  9. RIFAXIMIN [Concomitant]
     Dosage: 400 MG, 3X/DAY
     Route: 048
     Dates: start: 20070307
  10. GALENIC /CALCIUM/VITAMIN D/ [Concomitant]
     Dosage: 1 TAB, 1X/DAY
     Route: 048
     Dates: start: 20070514
  11. LORAZEPAM [Concomitant]
     Dosage: 0.5 MG, Q 6 HRS PRN
     Route: 048
     Dates: start: 20070626
  12. PREVACID [Concomitant]
     Dosage: 30 MG, 2X/DAY
     Route: 048
     Dates: start: 20070626
  13. METFORMIN [Concomitant]
     Dosage: UNK
     Route: 048
     Dates: start: 20090201
  14. ZOSYN [Concomitant]
     Dosage: UNK
     Route: 042
     Dates: start: 20090330, end: 20090404
  15. VANCOMYCIN [Concomitant]
     Dosage: UNK
     Route: 042
     Dates: start: 20090330, end: 20090405
  16. AVELOX [Concomitant]
     Dosage: UNK
     Route: 042
     Dates: start: 20090404, end: 20090405
  17. METRONIDAZOLE [Concomitant]
     Dosage: 500 MG, 3X/DAYX14DAYS
     Route: 048
     Dates: start: 20090405
  18. PREDNISONE [Concomitant]
     Dosage: 20 MG, 1X/DAY
     Route: 048
     Dates: start: 20090407, end: 20090410
  19. BENADRYL [Concomitant]
     Dosage: 25 MG, Q 6 HRS
     Route: 048
     Dates: start: 20090406, end: 20090412
  20. SODIUM CHLORIDE [Concomitant]
     Dosage: UNK
     Route: 042
     Dates: start: 20090328, end: 20090405
  21. POTASSIUM PHOSPHATE [Concomitant]
     Dosage: UNK
     Route: 042
     Dates: start: 20090404, end: 20090404
  22. POTASSIUM CHLORIDE [Concomitant]
     Dosage: UNK
     Route: 042
     Dates: start: 20090401, end: 20090401
  23. PHYTONADIONE [Concomitant]
     Dosage: 2.5 MG, UNK
     Route: 048
     Dates: start: 20090401, end: 20090401
  24. EUCERIN CREME [Concomitant]
     Dosage: CREAM OR OINTMENT TO FEET BID
     Route: 061
     Dates: start: 20090331, end: 20090412
  25. PENICILLIN VK [Concomitant]
     Dosage: UNK
     Route: 042
     Dates: start: 20090409, end: 20090409
  26. PENICILLIN G POTASSIUM [Concomitant]
     Dosage: 4 MMU, Q4 HRS
     Route: 042
     Dates: start: 20090409
  27. INSULIN, REGULAR [Concomitant]
     Dosage: UNK
     Route: 058
     Dates: start: 20090330
  28. FLUOCINONIDE [Concomitant]
     Dosage: UNK
     Route: 061
     Dates: start: 20090412
  29. MARINOL [Concomitant]
     Dosage: 300 MG, 2X/DAY
     Route: 048
     Dates: start: 20090412
  30. MIDECAMYCIN [Concomitant]
     Dosage: 30 ML, AS NEEDED
     Route: 048
     Dates: start: 20090412
  31. ABACAVIR [Concomitant]
     Dosage: 300 MG, 2X/DAY
     Route: 048
     Dates: start: 20090403, end: 20090406

REACTIONS (1)
  - TYPE IV HYPERSENSITIVITY REACTION [None]
